FAERS Safety Report 4831156-4 (Version None)
Quarter: 2005Q4

REPORT INFORMATION
  Report Type: 
  Country: None (occurrence: None)
  Receive Date: 20051118
  Receipt Date: 20051109
  Transmission Date: 20060501
  Serious: Yes (Hospitalization)
  Sender: FDA-Public Use
  Company Number: DE-JNJFOC-20051003260

PATIENT
  Age: 38 Year
  Sex: Male
  Weight: 78 kg

DRUGS (2)
  1. BLINDED; INFLIXIMAB, RECOMBINANT [Suspect]
     Indication: ANKYLOSING SPONDYLITIS
     Route: 042
  2. PLACEBO [Suspect]
     Indication: ANKYLOSING SPONDYLITIS
     Route: 042

REACTIONS (1)
  - BLOOD CREATINE PHOSPHOKINASE INCREASED [None]
